FAERS Safety Report 8081334-9 (Version None)
Quarter: 2012Q1

REPORT INFORMATION
  Report Type: 
  Country: None (occurrence: None)
  Receive Date: 20120130
  Receipt Date: 20111201
  Transmission Date: 20120608
  Serious: No
  Sender: FDA-Public Use
  Company Number: US-MUTUAL PHARMACEUTICAL COMPANY, INC.-CLCY20110154

PATIENT
  Sex: Female
  Weight: 49.94 kg

DRUGS (4)
  1. MULTAQ [Concomitant]
     Indication: ATRIAL FIBRILLATION
     Route: 048
  2. UNSPECIFIED MEDICATIONS [Concomitant]
     Indication: PRODUCT USED FOR UNKNOWN INDICATION
     Route: 065
  3. COLCRYS [Suspect]
     Indication: GOUT
     Route: 048
     Dates: start: 20111101
  4. ULORIC [Concomitant]
     Indication: GOUT
     Route: 048

REACTIONS (1)
  - HEART RATE INCREASED [None]
